FAERS Safety Report 23526469 (Version 1)
Quarter: 2024Q1

REPORT INFORMATION
  Report Type: Spontaneous
  Country: US (occurrence: None)
  Receive Date: 20240214
  Receipt Date: 20240214
  Transmission Date: 20240410
  Serious: Yes (Other)
  Sender: FDA-Public Use
  Company Number: None

PATIENT
  Age: 76 Year
  Sex: Female

DRUGS (12)
  1. AMBRISENTAN [Suspect]
     Active Substance: AMBRISENTAN
     Indication: Pulmonary hypertension
     Dosage: FREQUENCY : DAILY;?
     Route: 048
     Dates: start: 20210712
  2. TADALAFIL [Concomitant]
     Active Substance: TADALAFIL
  3. SELEXIPAG [Concomitant]
     Active Substance: SELEXIPAG
  4. TORSEMIDE [Concomitant]
     Active Substance: TORSEMIDE
  5. SPIRONOLACTONE [Concomitant]
     Active Substance: SPIRONOLACTONE
  6. PANTOPRAZOLE [Concomitant]
  7. ATORVASTATIN [Concomitant]
     Active Substance: ATORVASTATIN
  8. METFORMIN [Concomitant]
     Active Substance: METFORMIN HYDROCHLORIDE
  9. GLIPIZIDE [Concomitant]
     Active Substance: GLIPIZIDE
  10. WARFARIN [Concomitant]
  11. LORATADINE [Concomitant]
  12. PREDNISONE [Concomitant]
     Active Substance: PREDNISONE

REACTIONS (2)
  - Sciatica [None]
  - Osteoarthritis [None]

NARRATIVE: CASE EVENT DATE: 20240126
